FAERS Safety Report 16206802 (Version 1)
Quarter: 2019Q2

REPORT INFORMATION
  Report Type: Spontaneous
  Country: DE (occurrence: DE)
  Receive Date: 20190417
  Receipt Date: 20190417
  Transmission Date: 20190711
  Serious: Yes (Life-Threatening, Hospitalization)
  Sender: FDA-Public Use
  Company Number: DE-TEVA-2019-DE-1031145

PATIENT
  Age: 52 Year
  Sex: Female
  Weight: 74 kg

DRUGS (3)
  1. AMOXICILLIN-RATIOPHARM 1000MG FILMTABLETTEN [Suspect]
     Active Substance: AMOXICILLIN
     Dosage: 3000 MILLIGRAM DAILY; 3 X 1 TABLET
     Route: 048
     Dates: start: 20190311, end: 20190311
  2. GELOMYRTOL FORTE [Concomitant]
     Active Substance: HERBALS
     Indication: BRONCHITIS
  3. GELOMYRTOL FORTE [Concomitant]
     Active Substance: HERBALS
     Indication: SINUSITIS
     Dates: start: 20190311

REACTIONS (16)
  - Dyspnoea [Recovered/Resolved]
  - Dizziness [Recovered/Resolved]
  - Hot flush [Recovered/Resolved]
  - Blood pressure systolic decreased [Recovered/Resolved]
  - Disturbance in attention [Recovered/Resolved]
  - Hyperhidrosis [Recovered/Resolved]
  - Sensation of foreign body [Recovered/Resolved]
  - Anaphylactic shock [Recovered/Resolved]
  - Hypoaesthesia oral [Recovered/Resolved]
  - Cold sweat [Recovered/Resolved]
  - Hypotension [Recovered/Resolved]
  - Presyncope [Recovered/Resolved]
  - Hypoaesthesia [Recovered/Resolved]
  - Rash generalised [Recovered/Resolved]
  - Asthenia [Recovered/Resolved]
  - Dysarthria [Recovered/Resolved]

NARRATIVE: CASE EVENT DATE: 20190311
